FAERS Safety Report 8306592-4 (Version None)
Quarter: 2012Q2

REPORT INFORMATION
  Report Type: 
  Country: None (occurrence: None)
  Receive Date: 20120420
  Receipt Date: 20120420
  Transmission Date: 20120825
  Serious: Yes (Death)
  Sender: FDA-Public Use
  Company Number: None

PATIENT
  Sex: Male
  Weight: 180.4 kg

DRUGS (2)
  1. TAXOTERE [Suspect]
     Indication: TRANSITIONAL CELL CARCINOMA
     Dosage: 60 MG INTRAVENOUS
     Route: 042
     Dates: start: 20120321
  2. LAPATINIB [Suspect]
     Indication: TRANSITIONAL CELL CARCINOMA
     Dosage: 1250 MG ORAL
     Route: 048
     Dates: start: 20120410

REACTIONS (4)
  - NEOPLASM PROGRESSION [None]
  - PLEURAL EFFUSION [None]
  - BLADDER TRANSITIONAL CELL CARCINOMA METASTATIC [None]
  - CONFUSIONAL STATE [None]
